FAERS Safety Report 25683015 (Version 1)
Quarter: 2025Q3

REPORT INFORMATION
  Report Type: Spontaneous
  Country: US (occurrence: US)
  Receive Date: 20250814
  Receipt Date: 20250814
  Transmission Date: 20251021
  Serious: Yes (Other)
  Sender: UCB
  Company Number: US-UCBSA-2025048951

PATIENT
  Sex: Female
  Weight: 82.78 kg

DRUGS (6)
  1. KEPPRA [Suspect]
     Active Substance: LEVETIRACETAM
     Indication: Seizure
     Dosage: 250 MILLIGRAM, I TABLET, ONCE DAILY (QD)
     Route: 048
  2. BRIVIACT [Concomitant]
     Active Substance: BRIVARACETAM
     Indication: Seizure
     Dosage: 100 MILLIGRAM, ONE TABLET 2X/DAY (BID)
  3. NAYZILAM [Concomitant]
     Active Substance: MIDAZOLAM
     Indication: Seizure
     Dosage: 50 MG/O.1ML SOLUTION 1 SPRAY AS NEEDED NASALLY ONCE A DAY 1 SPRAY IN ONE NOSTRIL AS NEEDED FOR SEIZU
     Route: 045
  4. XCOPRI [Concomitant]
     Active Substance: CENOBAMATE
     Indication: Seizure
     Dosage: 150 MILLIGRAM, ONCE DAILY (QD), HS
     Route: 048
  5. XCOPRI [Concomitant]
     Active Substance: CENOBAMATE
     Dosage: 150 MILLIGRAM 2 TABLETS ONCE A DAY
     Route: 048
  6. PYRIDOXINE HYDROCHLORIDE [Concomitant]
     Active Substance: PYRIDOXINE HYDROCHLORIDE
     Indication: Product used for unknown indication
     Dosage: 50 MILLIGRAM, ONCE DAILY (QD)
     Route: 048

REACTIONS (5)
  - Seizure [Unknown]
  - Memory impairment [Unknown]
  - Fear [Unknown]
  - Agitation [Unknown]
  - Confusional state [Unknown]

NARRATIVE: CASE EVENT DATE: 20250101
